FAERS Safety Report 18135728 (Version 1)
Quarter: 2020Q3

REPORT INFORMATION
  Report Type: Spontaneous
  Country: US (occurrence: US)
  Receive Date: 20200811
  Receipt Date: 20200811
  Transmission Date: 20201103
  Serious: No
  Sender: FDA-Public Use
  Company Number: US-ROCHE-2523317

PATIENT
  Age: 55 Year
  Sex: Female
  Weight: 75.36 kg

DRUGS (6)
  1. BONIVA [Suspect]
     Active Substance: IBANDRONATE SODIUM
     Indication: OSTEOPOROSIS
     Dosage: 1 IN THE AM
     Route: 048
     Dates: start: 20200102, end: 20200102
  2. METHOCARBAMOL. [Concomitant]
     Active Substance: METHOCARBAMOL
     Route: 048
     Dates: start: 20200108, end: 20200108
  3. IBUPROFEN. [Concomitant]
     Active Substance: IBUPROFEN
     Route: 048
     Dates: start: 20200106
  4. ESTROGEN [Concomitant]
     Active Substance: ESTROGENS
     Indication: HYSTERECTOMY
     Dosage: PATCH PUT ON STOMACH MONTHLY
     Route: 061
  5. ESTROGEL [Concomitant]
     Active Substance: ESTRADIOL
     Indication: HYSTERECTOMY
     Dosage: PUMP APPLIED TO ARM ONCE EVERY NIGHT
     Route: 061
     Dates: start: 20170829
  6. CODEINE [Concomitant]
     Active Substance: CODEINE

REACTIONS (2)
  - Pain [Unknown]
  - Back pain [Not Recovered/Not Resolved]

NARRATIVE: CASE EVENT DATE: 20200105
